FAERS Safety Report 5130233-0 (Version None)
Quarter: 2006Q4

REPORT INFORMATION
  Report Type: 
  Country: None (occurrence: None)
  Receive Date: 20061019
  Receipt Date: 20061010
  Transmission Date: 20070319
  Serious: Yes (Hospitalization, Other)
  Sender: FDA-Public Use
  Company Number: US-JNJFOC-20060105230

PATIENT
  Sex: Female
  Weight: 65.77 kg

DRUGS (4)
  1. ORTHO EVRA [Suspect]
     Indication: CONTRACEPTION
     Route: 062
  2. ANTIBIOTICS [Suspect]
     Indication: DRUG USE FOR UNKNOWN INDICATION
  3. ROCEPHIN [Concomitant]
     Indication: PROPHYLAXIS
     Route: 042
  4. ZITHROMAX [Concomitant]
     Indication: PROPHYLAXIS
     Route: 048

REACTIONS (12)
  - ABDOMINAL PAIN [None]
  - DIARRHOEA [None]
  - DIZZINESS [None]
  - HAEMORRHOIDS [None]
  - HYPOKALAEMIA [None]
  - IDIOPATHIC THROMBOCYTOPENIC PURPURA [None]
  - IRON DEFICIENCY ANAEMIA [None]
  - MENORRHAGIA [None]
  - MICTURITION URGENCY [None]
  - MUSCULOSKELETAL CHEST PAIN [None]
  - PALPITATIONS [None]
  - THROMBOSIS [None]
